FAERS Safety Report 9055292 (Version 1)
Quarter: 2013Q1

REPORT INFORMATION
  Report Type: Spontaneous
  Country: CA (occurrence: CA)
  Receive Date: 20130209
  Receipt Date: 20130209
  Transmission Date: 20140127
  Serious: Yes (Other)
  Sender: FDA-Public Use
  Company Number: CA-AMGEN-CANSP2013007078

PATIENT
  Age: 61 Year
  Sex: Female
  Weight: 72.7 kg

DRUGS (1)
  1. PROLIA [Suspect]
     Indication: OSTEOPOROSIS POSTMENOPAUSAL

REACTIONS (8)
  - Gastric ulcer [Unknown]
  - Large intestine polyp [Unknown]
  - Gallbladder polyp [Unknown]
  - Ovarian neoplasm [Unknown]
  - Cataract [Unknown]
  - Headache [Unknown]
  - Blood pressure abnormal [Unknown]
  - Unevaluable event [Unknown]
